FAERS Safety Report 4592207-8 (Version None)
Quarter: 2005Q1

REPORT INFORMATION
  Report Type: 
  Country: None (occurrence: None)
  Receive Date: 20050228
  Receipt Date: 20050216
  Transmission Date: 20050727
  Serious: Yes (Hospitalization, Disabling)
  Sender: FDA-Public Use
  Company Number: US-JNJFOC-20050203904

PATIENT
  Sex: Male
  Weight: 95.26 kg

DRUGS (2)
  1. REMICADE [Suspect]
     Indication: CROHN'S DISEASE
     Dosage: 3 INFUSIONS.
     Route: 042
  2. STEROIDS [Concomitant]
     Indication: CROHN'S DISEASE

REACTIONS (4)
  - ABASIA [None]
  - ASTHENIA [None]
  - FATIGUE [None]
  - PNEUMONIA [None]
